FAERS Safety Report 15066641 (Version 5)
Quarter: 2018Q3

REPORT INFORMATION
  Report Type: Spontaneous
  Country: FR (occurrence: FR)
  Receive Date: 20180626
  Receipt Date: 20180718
  Transmission Date: 20181010
  Serious: Yes (Hospitalization, Other)
  Sender: FDA-Public Use
  Company Number: PHHY2018FR024897

PATIENT
  Age: 62 Year
  Sex: Female

DRUGS (16)
  1. METFORMIN [Suspect]
     Active Substance: METFORMIN HYDROCHLORIDE
     Dosage: RESUMED THERAPY
     Route: 048
  2. JANUMET [Suspect]
     Active Substance: METFORMIN HYDROCHLORIDE\SITAGLIPTIN PHOSPHATE
     Dosage: UNK UNK, QD (IN THE MORNING)
     Route: 048
  3. JANUMET [Suspect]
     Active Substance: METFORMIN HYDROCHLORIDE\SITAGLIPTIN PHOSPHATE
     Dosage: MORNING 8 AM AND EVENING 8 PM
     Route: 048
     Dates: start: 20180321
  4. HEMI?DAONIL [Suspect]
     Active Substance: GLYBURIDE
     Indication: DIABETES MELLITUS
     Dosage: UNK UNK, QD (HALF AN HOUR BEFORE THE USUAL TIME)
     Route: 048
     Dates: end: 20180320
  5. INSULIN [Suspect]
     Active Substance: INSULIN NOS
     Indication: DIABETES MELLITUS
     Dosage: UNK UNK, QD (RAPID?ACTING INSULIN, AT MIDDAY)
     Route: 065
  6. INSULIN [Suspect]
     Active Substance: INSULIN NOS
     Dosage: UNKNOWN TYPE
     Route: 065
  7. DIAMICRON [Suspect]
     Active Substance: GLICLAZIDE
     Indication: DIABETES MELLITUS
     Dosage: 2 UG/LITRE, QD (IN THE MORNING)
     Route: 065
  8. JANUMET [Suspect]
     Active Substance: METFORMIN HYDROCHLORIDE\SITAGLIPTIN PHOSPHATE
     Dosage: MORNING AND EVENING
     Route: 048
  9. LANTUS [Suspect]
     Active Substance: INSULIN GLARGINE
     Indication: DIABETES MELLITUS
     Dosage: QD (IN THE EVENING)
     Route: 065
  10. METFORMIN [Suspect]
     Active Substance: METFORMIN HYDROCHLORIDE
     Dosage: 2000 MG, UNK
     Route: 048
  11. JANUMET [Suspect]
     Active Substance: METFORMIN HYDROCHLORIDE\SITAGLIPTIN PHOSPHATE
     Indication: DIABETES MELLITUS
     Dosage: UNK UNK, BID (TWICE DAILY)
     Route: 048
  12. NOVORAPID [Suspect]
     Active Substance: INSULIN ASPART
     Indication: PRODUCT USED FOR UNKNOWN INDICATION
     Dosage: 3 IU, QD (AM)
     Route: 065
     Dates: start: 20180321
  13. METFORMIN [Suspect]
     Active Substance: METFORMIN HYDROCHLORIDE
     Dosage: IN THE MORNING AND IN THE EVENING
     Route: 048
  14. COKENZEN [Concomitant]
     Active Substance: CANDESARTAN CILEXETIL\HYDROCHLOROTHIAZIDE
     Indication: HYPERTENSION
     Dosage: UNK
     Route: 065
  15. METFORMIN [Suspect]
     Active Substance: METFORMIN HYDROCHLORIDE
     Indication: DIABETES MELLITUS
     Dosage: 1000 MG, QD (AT MIDDAY)
     Route: 048
  16. TN [Concomitant]
     Active Substance: TROLNITRATE
     Indication: DIABETES MELLITUS
     Route: 065

REACTIONS (12)
  - Blood pressure decreased [Not Recovered/Not Resolved]
  - Chest pain [Unknown]
  - Pulse abnormal [Not Recovered/Not Resolved]
  - Palpitations [Not Recovered/Not Resolved]
  - Gout [Not Recovered/Not Resolved]
  - Palpitations [Not Recovered/Not Resolved]
  - Hyperglycaemia [Not Recovered/Not Resolved]
  - Hypertensive crisis [Unknown]
  - Weight decreased [Unknown]
  - Heart rate increased [Unknown]
  - Inappropriate schedule of drug administration [Unknown]
  - Hypoglycaemia [Not Recovered/Not Resolved]

NARRATIVE: CASE EVENT DATE: 201712
